FAERS Safety Report 20603686 (Version 1)
Quarter: 2022Q1

REPORT INFORMATION
  Report Type: Spontaneous
  Country: US (occurrence: None)
  Receive Date: 20220316
  Receipt Date: 20220316
  Transmission Date: 20220424
  Serious: No
  Sender: FDA-Public Use
  Company Number: None

PATIENT
  Age: 73 Year
  Sex: Male
  Weight: 83.01 kg

DRUGS (3)
  1. SACUBITRIL\VALSARTAN [Suspect]
     Active Substance: SACUBITRIL\VALSARTAN
     Indication: Cardiovascular disorder
     Dosage: OTHER QUANTITY : 1/2 TAB;?FREQUENCY : TWICE A DAY;?
     Route: 048
     Dates: start: 20211027
  2. SACUBITRIL\VALSARTAN [Suspect]
     Active Substance: SACUBITRIL\VALSARTAN
     Indication: Surgery
  3. FUROSEMIDE [Suspect]
     Active Substance: FUROSEMIDE
     Indication: Cardiac failure congestive
     Dosage: FREQUENCY : TWICE A DAY;?
     Route: 048
     Dates: start: 20190508

REACTIONS (4)
  - Dizziness [None]
  - Hypotension [None]
  - Acute kidney injury [None]
  - Vision blurred [None]

NARRATIVE: CASE EVENT DATE: 20211217
